FAERS Safety Report 21870120 (Version 1)
Quarter: 2023Q1

REPORT INFORMATION
  Report Type: Spontaneous
  Country: GB (occurrence: GB)
  Receive Date: 20230117
  Receipt Date: 20230117
  Transmission Date: 20230418
  Serious: Yes (Other)
  Sender: FDA-Public Use
  Company Number: None

PATIENT
  Age: 23 Year
  Sex: Female
  Weight: 56 kg

DRUGS (3)
  1. MONTELUKAST [Suspect]
     Active Substance: MONTELUKAST SODIUM
     Indication: Asthma
     Dosage: 10 MG ONCE A DAY
     Dates: start: 202010
  2. FLUTICASONE FUROATE [Concomitant]
     Active Substance: FLUTICASONE FUROATE
     Indication: Asthma
  3. BECLOMETHASONE\FORMOTEROL [Concomitant]
     Active Substance: BECLOMETHASONE\FORMOTEROL
     Indication: Asthma
     Dates: start: 201902

REACTIONS (3)
  - Abnormal dreams [Not Recovered/Not Resolved]
  - Irritability [Not Recovered/Not Resolved]
  - Intrusive thoughts [Not Recovered/Not Resolved]

NARRATIVE: CASE EVENT DATE: 20201001
